FAERS Safety Report 7167519-4 (Version None)
Quarter: 2010Q4

REPORT INFORMATION
  Report Type: 
  Country: None (occurrence: None)
  Receive Date: 20101216
  Receipt Date: 20100218
  Transmission Date: 20110411
  Serious: No
  Sender: FDA-Public Use
  Company Number: A0846553A

PATIENT
  Sex: Male

DRUGS (1)
  1. NICOTINE POLACRILEX [Suspect]

REACTIONS (2)
  - SENSATION OF FOREIGN BODY [None]
  - THROAT IRRITATION [None]
